FAERS Safety Report 20475919 (Version 7)
Quarter: 2022Q2

REPORT INFORMATION
  Report Type: Report from Study
  Country: US (occurrence: US)
  Receive Date: 20220215
  Receipt Date: 20220623
  Transmission Date: 20220720
  Serious: Yes (Hospitalization, Other)
  Sender: FDA-Public Use
  Company Number: US-TAKEDA-2022TUS010123

PATIENT
  Age: 91 Year
  Sex: Male

DRUGS (21)
  1. TEDUGLUTIDE [Suspect]
     Active Substance: TEDUGLUTIDE
     Indication: Malnutrition
     Dosage: 2.85 MILLIGRAM, QD
     Route: 058
     Dates: start: 20220101
  2. TEDUGLUTIDE [Suspect]
     Active Substance: TEDUGLUTIDE
     Indication: Malnutrition
     Dosage: 2.85 MILLIGRAM, QD
     Route: 058
     Dates: start: 20220101
  3. TEDUGLUTIDE [Suspect]
     Active Substance: TEDUGLUTIDE
     Indication: Malnutrition
     Dosage: 2.85 MILLIGRAM, QD
     Route: 058
     Dates: start: 20220101
  4. TEDUGLUTIDE [Suspect]
     Active Substance: TEDUGLUTIDE
     Indication: Malnutrition
     Dosage: 2.85 MILLIGRAM, QD
     Route: 058
     Dates: start: 20220101
  5. TEDUGLUTIDE [Suspect]
     Active Substance: TEDUGLUTIDE
     Indication: Post procedural complication
     Dosage: 2.85 MILLIGRAM, QD
     Route: 058
     Dates: start: 20220110
  6. TEDUGLUTIDE [Suspect]
     Active Substance: TEDUGLUTIDE
     Indication: Post procedural complication
     Dosage: 2.85 MILLIGRAM, QD
     Route: 058
     Dates: start: 20220110
  7. TEDUGLUTIDE [Suspect]
     Active Substance: TEDUGLUTIDE
     Indication: Post procedural complication
     Dosage: 2.85 MILLIGRAM, QD
     Route: 058
     Dates: start: 20220110
  8. TEDUGLUTIDE [Suspect]
     Active Substance: TEDUGLUTIDE
     Indication: Post procedural complication
     Dosage: 2.85 MILLIGRAM, QD
     Route: 058
     Dates: start: 20220110
  9. TEDUGLUTIDE [Suspect]
     Active Substance: TEDUGLUTIDE
     Indication: Diarrhoea
     Dosage: 2.85 MILLIGRAM, QD
     Route: 058
     Dates: start: 20220119
  10. TEDUGLUTIDE [Suspect]
     Active Substance: TEDUGLUTIDE
     Indication: Diarrhoea
     Dosage: 2.85 MILLIGRAM, QD
     Route: 058
     Dates: start: 20220119
  11. TEDUGLUTIDE [Suspect]
     Active Substance: TEDUGLUTIDE
     Indication: Diarrhoea
     Dosage: 2.85 MILLIGRAM, QD
     Route: 058
     Dates: start: 20220119
  12. TEDUGLUTIDE [Suspect]
     Active Substance: TEDUGLUTIDE
     Indication: Diarrhoea
     Dosage: 2.85 MILLIGRAM, QD
     Route: 058
     Dates: start: 20220119
  13. TEDUGLUTIDE [Suspect]
     Active Substance: TEDUGLUTIDE
     Indication: Malabsorption
     Dosage: 2.85 MILLIGRAM, QD
     Route: 058
     Dates: start: 20220121
  14. TEDUGLUTIDE [Suspect]
     Active Substance: TEDUGLUTIDE
     Indication: Malabsorption
     Dosage: 2.85 MILLIGRAM, QD
     Route: 058
     Dates: start: 20220121
  15. TEDUGLUTIDE [Suspect]
     Active Substance: TEDUGLUTIDE
     Indication: Malabsorption
     Dosage: 2.85 MILLIGRAM, QD
     Route: 058
     Dates: start: 20220121
  16. TEDUGLUTIDE [Suspect]
     Active Substance: TEDUGLUTIDE
     Indication: Malabsorption
     Dosage: 2.85 MILLIGRAM, QD
     Route: 058
     Dates: start: 20220121
  17. TEDUGLUTIDE [Suspect]
     Active Substance: TEDUGLUTIDE
     Indication: Crohn^s disease
     Dosage: 2.85 MILLIGRAM, QD
     Route: 058
     Dates: start: 202201
  18. TEDUGLUTIDE [Suspect]
     Active Substance: TEDUGLUTIDE
     Indication: Crohn^s disease
     Dosage: 2.85 MILLIGRAM, QD
     Route: 058
     Dates: start: 202201
  19. TEDUGLUTIDE [Suspect]
     Active Substance: TEDUGLUTIDE
     Indication: Crohn^s disease
     Dosage: 2.85 MILLIGRAM, QD
     Route: 058
     Dates: start: 202201
  20. TEDUGLUTIDE [Suspect]
     Active Substance: TEDUGLUTIDE
     Indication: Crohn^s disease
     Dosage: 2.85 MILLIGRAM, QD
     Route: 058
     Dates: start: 202201
  21. OCTREOTIDE [Concomitant]
     Active Substance: OCTREOTIDE
     Dosage: UNK
     Route: 065

REACTIONS (13)
  - Hospitalisation [Unknown]
  - Blood pressure decreased [Unknown]
  - Syncope [Unknown]
  - Intestinal obstruction [Unknown]
  - Stoma complication [Unknown]
  - Fluid retention [Unknown]
  - Peripheral swelling [Unknown]
  - Flatulence [Unknown]
  - Wound [Unknown]
  - Stoma prolapse [Unknown]
  - Device difficult to use [Unknown]
  - Off label use [Unknown]
  - Product dose omission issue [Unknown]

NARRATIVE: CASE EVENT DATE: 20220325
